FAERS Safety Report 10522368 (Version 1)
Quarter: 2014Q4

REPORT INFORMATION
  Report Type: Spontaneous
  Country: US (occurrence: US)
  Receive Date: 20141016
  Receipt Date: 20141016
  Transmission Date: 20150528
  Serious: No
  Sender: FDA-Public Use
  Company Number: US-GLAXOSMITHKLINE-US2014GSK006664

PATIENT
  Sex: Female

DRUGS (3)
  1. VERAMYST [Suspect]
     Active Substance: FLUTICASONE FUROATE
     Indication: PRODUCT USED FOR UNKNOWN INDICATION
     Dosage: UNK
  2. FLONASE [Suspect]
     Active Substance: FLUTICASONE PROPIONATE
     Indication: PRODUCT USED FOR UNKNOWN INDICATION
     Dosage: UNK
  3. STEROID (UNKNOWN NAME) [Concomitant]
     Indication: HYPERSENSITIVITY

REACTIONS (1)
  - Bronchitis [Recovered/Resolved]

NARRATIVE: CASE EVENT DATE: 201409
